FAERS Safety Report 14523395 (Version 3)
Quarter: 2018Q1

REPORT INFORMATION
  Report Type: Report from Study
  Country: US (occurrence: US)
  Receive Date: 20180212
  Receipt Date: 20180323
  Transmission Date: 20180509
  Serious: No
  Sender: FDA-Public Use
  Company Number: US-AMGEN-USASL2018018950

PATIENT
  Age: 50 Year
  Sex: Female

DRUGS (1)
  1. ENBREL [Suspect]
     Active Substance: ETANERCEPT
     Indication: ANKYLOSING SPONDYLITIS
     Dosage: 50 MG, QWK
     Route: 065
     Dates: start: 201801

REACTIONS (9)
  - Abdominal pain upper [Unknown]
  - Injection site bruising [Unknown]
  - Corrective lens user [Unknown]
  - Injection site swelling [Unknown]
  - Injection site erythema [Unknown]
  - Dysgeusia [Unknown]
  - Hypersensitivity [Unknown]
  - Fatigue [Unknown]
  - Headache [Unknown]

NARRATIVE: CASE EVENT DATE: 2018
